FAERS Safety Report 6923550-2 (Version None)
Quarter: 2010Q3

REPORT INFORMATION
  Report Type: 
  Country: None (occurrence: None)
  Receive Date: 20100813
  Receipt Date: 20100809
  Transmission Date: 20110219
  Serious: Yes (Hospitalization)
  Sender: FDA-Public Use
  Company Number: A0874611A

PATIENT
  Age: 74 Year
  Sex: Female

DRUGS (10)
  1. ADVAIR DISKUS 100/50 [Suspect]
     Indication: CHRONIC OBSTRUCTIVE PULMONARY DISEASE
     Dosage: 1PUFF TWICE PER DAY
     Route: 055
     Dates: start: 20020101
  2. OXYGEN [Concomitant]
  3. SPIRIVA [Concomitant]
  4. PLAVIX [Concomitant]
  5. HYZAAR [Concomitant]
  6. XANAX [Concomitant]
  7. CYMBALTA [Concomitant]
  8. DURAGESIC-100 [Concomitant]
  9. FOLIC ACID [Concomitant]
  10. KLOR-CON [Concomitant]

REACTIONS (3)
  - ANEURYSM [None]
  - MYOCARDIAL INFARCTION [None]
  - PAIN IN EXTREMITY [None]
